FAERS Safety Report 9341343 (Version 1)
Quarter: 2013Q2

REPORT INFORMATION
  Report Type: Spontaneous
  Country: US (occurrence: US)
  Receive Date: 20130611
  Receipt Date: 20130611
  Transmission Date: 20140414
  Serious: No
  Sender: FDA-Public Use
  Company Number: US-009507513-1305USA003415

PATIENT
  Age: 54 Year
  Sex: Female

DRUGS (10)
  1. JANUVIA [Suspect]
     Indication: TYPE 2 DIABETES MELLITUS
     Dosage: 100 MG, ONCE A DAY
     Route: 048
     Dates: start: 201209
  2. METFORMIN [Concomitant]
  3. LANTUS [Concomitant]
  4. FENTANYL [Concomitant]
  5. CELEBREX [Concomitant]
  6. LORAZEPAM [Concomitant]
     Dosage: UNK, PRN
  7. LOSARTAN POTASSIUM [Concomitant]
  8. ATORVASTATIN [Concomitant]
  9. SYNTHROID [Concomitant]
  10. OMEPRAZOLE [Concomitant]

REACTIONS (3)
  - Erythema [Not Recovered/Not Resolved]
  - Pain in extremity [Not Recovered/Not Resolved]
  - Product blister packaging issue [Unknown]
